FAERS Safety Report 6855600-6 (Version None)
Quarter: 2010Q3

REPORT INFORMATION
  Report Type: 
  Country: None (occurrence: None)
  Receive Date: 20100719
  Receipt Date: 20100706
  Transmission Date: 20110219
  Serious: Yes (Hospitalization, Other)
  Sender: FDA-Public Use
  Company Number: US-BAYER-201020342NA

PATIENT
  Age: 16 Year
  Sex: Female
  Weight: 69 kg

DRUGS (9)
  1. YASMIN [Suspect]
     Indication: CONTRACEPTION
     Route: 048
     Dates: start: 20050501, end: 20090201
  2. YAZ [Suspect]
     Indication: CONTRACEPTION
     Route: 048
     Dates: start: 20090201, end: 20090301
  3. OCELLA [Suspect]
     Indication: CONTRACEPTION
     Route: 048
     Dates: start: 20090301, end: 20090501
  4. PENICILLIN [Concomitant]
     Dates: start: 20081201
  5. COTRIM [Concomitant]
     Dates: start: 20080901
  6. DOXYCYCLINE [Concomitant]
     Dates: start: 20081001
  7. AZITHROMYCIN [Concomitant]
     Dates: start: 20090301
  8. ROCEPHIN [Concomitant]
     Indication: VOMITING
     Dates: start: 20090323
  9. DECADRON [Concomitant]
     Indication: VOMITING
     Route: 030
     Dates: start: 20090323

REACTIONS (11)
  - ABDOMINAL PAIN UPPER [None]
  - CHOLECYSTECTOMY [None]
  - CHOLECYSTITIS CHRONIC [None]
  - CHOLELITHIASIS [None]
  - CONSTIPATION [None]
  - INCISION SITE PAIN [None]
  - INTRA-UTERINE DEATH [None]
  - NAUSEA [None]
  - PREGNANCY [None]
  - TONSILLITIS [None]
  - VOMITING [None]
